FAERS Safety Report 5180038-X (Version None)
Quarter: 2006Q4

REPORT INFORMATION
  Report Type: 
  Country: None (occurrence: None)
  Receive Date: 20061219
  Receipt Date: 20060901
  Transmission Date: 20070319
  Serious: No
  Sender: FDA-Public Use
  Company Number: US-AMGEN-KDL192063

PATIENT
  Sex: Female
  Weight: 93.1 kg

DRUGS (3)
  1. ENBREL [Suspect]
     Indication: PSORIASIS
     Route: 058
     Dates: start: 20050317, end: 20060823
  2. HYDROCHLOROTHIAZIDE [Concomitant]
  3. CALCIUM WITH VITAMIN D [Concomitant]

REACTIONS (7)
  - CONDITION AGGRAVATED [None]
  - LOCALISED OEDEMA [None]
  - PRURITUS [None]
  - PSORIASIS [None]
  - RASH [None]
  - UPPER RESPIRATORY TRACT INFECTION [None]
  - URTICARIA LOCALISED [None]
